FAERS Safety Report 9315423 (Version 1)
Quarter: 2013Q2

REPORT INFORMATION
  Report Type: Other
  Country: FR (occurrence: FR)
  Receive Date: 20130529
  Receipt Date: 20130529
  Transmission Date: 20140414
  Serious: Yes (Hospitalization)
  Sender: FDA-Public Use
  Company Number: FR-WATSON-2013-09071

PATIENT
  Age: 84 Year
  Sex: Male

DRUGS (4)
  1. METFORMIN HYDROCHLORIDE [Suspect]
     Indication: DIABETES MELLITUS
     Dosage: 500 MG, BID
     Route: 048
     Dates: start: 201303, end: 20130331
  2. METFORMIN HYDROCHLORIDE [Suspect]
     Dosage: 1000 MG, BID
     Route: 048
     Dates: start: 201212, end: 201303
  3. KARDEGIC [Concomitant]
     Indication: PRODUCT USED FOR UNKNOWN INDICATION
     Dosage: 75 MG, UNKNOWN
     Route: 065
  4. SEROPLEX [Concomitant]
     Indication: PRODUCT USED FOR UNKNOWN INDICATION
     Dosage: 10 MG, UNKNOWN
     Route: 065

REACTIONS (4)
  - Lactic acidosis [Recovering/Resolving]
  - Renal failure acute [Unknown]
  - Hyperkalaemia [Unknown]
  - Weight decreased [Unknown]
